FAERS Safety Report 5010008-3 (Version None)
Quarter: 2006Q2

REPORT INFORMATION
  Report Type: 
  Country: None (occurrence: None)
  Receive Date: 20060523
  Receipt Date: 20060508
  Transmission Date: 20061013
  Serious: Yes (Other)
  Sender: FDA-Public Use
  Company Number: 2006BL002350

PATIENT
  Age: 84 Year
  Sex: Female

DRUGS (3)
  1. FLOXAL AUGENTROPFEN (OFLOXACIN) [Suspect]
     Indication: ULCERATIVE KERATITIS
     Dosage: TOPICAL
     Route: 061
  2. CEFUROXIME [Concomitant]
  3. GENTAMICIN [Concomitant]

REACTIONS (5)
  - ACID BASE BALANCE ABNORMAL [None]
  - CORNEAL DEPOSITS [None]
  - DRUG INTERACTION [None]
  - DRUG TOXICITY [None]
  - MORAXELLA INFECTION [None]
